FAERS Safety Report 17272480 (Version 1)
Quarter: 2020Q1

REPORT INFORMATION
  Report Type: Spontaneous
  Country: JP (occurrence: JP)
  Receive Date: 20200115
  Receipt Date: 20200115
  Transmission Date: 20200409
  Serious: Yes (Other)
  Sender: FDA-Public Use
  Company Number: JP-ASTRAZENECA-2020SE05311

PATIENT
  Age: 71 Year
  Sex: Female
  Weight: 52 kg

DRUGS (4)
  1. RANMARK [Suspect]
     Active Substance: DENOSUMAB
     Indication: THERAPEUTIC PROCEDURE
     Route: 058
     Dates: start: 20140826, end: 201607
  2. IBRANCE [Suspect]
     Active Substance: PALBOCICLIB
     Indication: BREAST CANCER RECURRENT
     Route: 048
     Dates: start: 20181030, end: 20190417
  3. RANMARK [Suspect]
     Active Substance: DENOSUMAB
     Indication: THERAPEUTIC PROCEDURE
     Route: 058
     Dates: start: 20181030, end: 20190416
  4. FULVESTRANT. [Suspect]
     Active Substance: FULVESTRANT
     Indication: THERAPEUTIC PROCEDURE
     Route: 030
     Dates: start: 20180123, end: 20190416

REACTIONS (2)
  - Neutrophil count decreased [Unknown]
  - Interstitial lung disease [Unknown]

NARRATIVE: CASE EVENT DATE: 20190219
